FAERS Safety Report 12541478 (Version 1)
Quarter: 2016Q3

REPORT INFORMATION
  Report Type: Spontaneous
  Country: US (occurrence: US)
  Receive Date: 20160708
  Receipt Date: 20160708
  Transmission Date: 20161109
  Serious: Yes (Hospitalization)
  Sender: FDA-Public Use
  Company Number: US-VERTEX PHARMACEUTICALS-2016-004159

PATIENT
  Sex: Female

DRUGS (11)
  1. KALYDECO [Suspect]
     Active Substance: IVACAFTOR
     Indication: CYSTIC FIBROSIS
     Dosage: 150 MG, BID
     Route: 048
     Dates: start: 20150423
  2. MAGNESIUM OXIDE. [Concomitant]
     Active Substance: MAGNESIUM OXIDE
     Dosage: 400 MG, UNK
  3. ONDANSETRON [Concomitant]
     Active Substance: ONDANSETRON
  4. NAPROXEN. [Concomitant]
     Active Substance: NAPROXEN
  5. MUCUS RELIEF [Concomitant]
     Active Substance: GUAIFENESIN
     Dosage: 600 MG, UNK
  6. COLLAGENASE SANTYL [Concomitant]
     Active Substance: COLLAGENASE CLOSTRIDIUM HISTOLYTICUM
  7. METAXALONE. [Concomitant]
     Active Substance: METAXALONE
     Dosage: 800 MG, UNK
  8. ALBUTEROL. [Concomitant]
     Active Substance: ALBUTEROL
  9. OXYCODONE AND ACETAMINOPHEN [Concomitant]
     Active Substance: ACETAMINOPHEN\OXYCODONE HYDROCHLORIDE
  10. POTASSIUM CHLORIDE. [Concomitant]
     Active Substance: POTASSIUM CHLORIDE
  11. SODIUM CHLORIDE. [Concomitant]
     Active Substance: SODIUM CHLORIDE

REACTIONS (1)
  - Hospitalisation [Unknown]
